FAERS Safety Report 7350503-5 (Version None)
Quarter: 2011Q1

REPORT INFORMATION
  Report Type: 
  Country: None (occurrence: None)
  Receive Date: 20110314
  Receipt Date: 20110310
  Transmission Date: 20110831
  Serious: Yes (Other)
  Sender: FDA-Public Use
  Company Number: GB-PFIZER INC-2011053876

PATIENT
  Age: 39 Year
  Sex: Female
  Weight: 73 kg

DRUGS (6)
  1. CHAMPIX [Suspect]
     Indication: SMOKING CESSATION THERAPY
     Dosage: UNK
     Route: 048
     Dates: start: 20110119, end: 20110225
  2. PROPRANOLOL [Concomitant]
     Indication: MIGRAINE
     Dosage: 80 MG, 1X/DAY
     Route: 048
     Dates: start: 20010101
  3. NARATRIPTAN [Concomitant]
     Indication: MIGRAINE
     Dosage: 2.5 MG, AS NEEDED
     Route: 048
     Dates: start: 20010101
  4. TOPIRAMATE [Concomitant]
     Indication: MIGRAINE
     Dosage: 25 MG, 2X/DAY
     Route: 048
     Dates: start: 20090101
  5. CLOBAZAM [Concomitant]
     Indication: MIGRAINE
     Dosage: 10 MG, 1X/DAY
     Route: 048
     Dates: start: 20090101
  6. ORLISTAT [Concomitant]
     Indication: WEIGHT DECREASED
     Dosage: 120 MG, 3X/DAY
     Route: 048
     Dates: start: 20070101

REACTIONS (2)
  - URINARY RETENTION [None]
  - RENAL PAIN [None]
